FAERS Safety Report 4364568-6 (Version None)
Quarter: 2004Q2

REPORT INFORMATION
  Report Type: 
  Country: None (occurrence: None)
  Receive Date: 20040525
  Receipt Date: 20040329
  Transmission Date: 20050107
  Serious: Yes (Hospitalization)
  Sender: FDA-Public Use
  Company Number: DE-MERCK-0404DEU00027

PATIENT
  Age: 78 Year
  Sex: Male

DRUGS (2)
  1. PROSCAR [Suspect]
     Indication: NEURALGIA
     Route: 048
     Dates: start: 19990101, end: 20000101
  2. PROSCAR [Suspect]
     Route: 048
     Dates: start: 20000101

REACTIONS (4)
  - BONE DISORDER [None]
  - GYNAECOMASTIA [None]
  - HEARING IMPAIRED [None]
  - MEDICATION ERROR [None]
